FAERS Safety Report 11522158 (Version 1)
Quarter: 2015Q3

REPORT INFORMATION
  Report Type: Spontaneous
  Country: US (occurrence: US)
  Receive Date: 20150918
  Receipt Date: 20150918
  Transmission Date: 20151125
  Serious: No
  Sender: FDA-Public Use
  Company Number: US-ROCHE-701639

PATIENT
  Age: 60 Year
  Sex: Female
  Weight: 72.6 kg

DRUGS (2)
  1. PEGASYS [Suspect]
     Active Substance: PEGINTERFERON ALFA-2A
     Indication: HEPATITIS C
     Dosage: FORM: PRE-FILLED SYRINGE
     Route: 058
     Dates: start: 20100104, end: 20100504
  2. RIBAVIRIN. [Suspect]
     Active Substance: RIBAVIRIN
     Indication: HEPATITIS C
     Dosage: DIVIDED DOSES
     Route: 048
     Dates: start: 20100104, end: 20100504

REACTIONS (17)
  - Anaemia [Unknown]
  - Throat irritation [Not Recovered/Not Resolved]
  - Anxiety [Unknown]
  - Abdominal distension [Not Recovered/Not Resolved]
  - Dysphagia [Unknown]
  - Headache [Not Recovered/Not Resolved]
  - Pyrexia [Unknown]
  - Weight increased [Unknown]
  - Abdominal pain [Not Recovered/Not Resolved]
  - Nausea [Not Recovered/Not Resolved]
  - Fatigue [Unknown]
  - Dyspnoea [Unknown]
  - Mass [Unknown]
  - Soft tissue infection [Unknown]
  - Palpitations [Unknown]
  - Dysgeusia [Unknown]
  - Musculoskeletal chest pain [Unknown]

NARRATIVE: CASE EVENT DATE: 20100111
